FAERS Safety Report 6887465-0 (Version None)
Quarter: 2010Q3

REPORT INFORMATION
  Report Type: 
  Country: None (occurrence: None)
  Receive Date: 20100708
  Receipt Date: 20091211
  Transmission Date: 20110219
  Serious: Yes (Other)
  Sender: FDA-Public Use
  Company Number: 2009309222

PATIENT
  Age: 22 Year
  Sex: Female
  Weight: 92.5 kg

DRUGS (1)
  1. CHANTIX [Suspect]
     Indication: SMOKING CESSATION THERAPY
     Dosage: 0.5 MG, ORAL
     Route: 048
     Dates: start: 20080101, end: 20081201

REACTIONS (1)
  - LOSS OF CONSCIOUSNESS [None]
